FAERS Safety Report 13488465 (Version 1)
Quarter: 2017Q2

REPORT INFORMATION
  Report Type: Spontaneous
  Country: US (occurrence: US)
  Receive Date: 20170426
  Receipt Date: 20170426
  Transmission Date: 20170830
  Serious: No
  Sender: FDA-Public Use
  Company Number: None

PATIENT
  Age: 76 Year
  Sex: Male

DRUGS (1)
  1. ENOXAPARIN INJ 100MG/ML [Suspect]
     Active Substance: ENOXAPARIN SODIUM

REACTIONS (1)
  - Injection site nodule [None]

NARRATIVE: CASE EVENT DATE: 20170420
